FAERS Safety Report 16540480 (Version 1)
Quarter: 2019Q3

REPORT INFORMATION
  Report Type: Spontaneous
  Country: SE (occurrence: SE)
  Receive Date: 20190708
  Receipt Date: 20190708
  Transmission Date: 20191004
  Serious: Yes (Other)
  Sender: FDA-Public Use
  Company Number: SE-PFIZER INC-2019286809

PATIENT
  Age: 21 Year
  Sex: Female

DRUGS (1)
  1. ZELDOX [Suspect]
     Active Substance: ZIPRASIDONE
     Indication: SCHIZOPHRENIA
     Dosage: UNK
     Dates: end: 20140101

REACTIONS (1)
  - Spinal cord disorder [Unknown]

NARRATIVE: CASE EVENT DATE: 2012
